FAERS Safety Report 6646968-4 (Version None)
Quarter: 2010Q1

REPORT INFORMATION
  Report Type: 
  Country: None (occurrence: None)
  Receive Date: 20100323
  Receipt Date: 20100315
  Transmission Date: 20100710
  Serious: Yes (Other)
  Sender: FDA-Public Use
  Company Number: CA-PFIZER INC-2010033484

PATIENT
  Age: 68 Year
  Sex: Male

DRUGS (4)
  1. LIPITOR [Suspect]
     Dosage: 40 MG, UNK
     Dates: start: 20100310
  2. INDAPAMIDE ^MYLAN^ [Concomitant]
     Dosage: 2.5 MG, UNK
  3. NOVO-METOPROL [Concomitant]
     Dosage: 100 MG, 2X/DAY
  4. ASPIRIN [Concomitant]
     Dosage: 80 MG, UNK

REACTIONS (1)
  - FAECES DISCOLOURED [None]
